FAERS Safety Report 6463738-0 (Version None)
Quarter: 2009Q4

REPORT INFORMATION
  Report Type: 
  Country: None (occurrence: None)
  Receive Date: 20091123
  Receipt Date: 20091111
  Transmission Date: 20100525
  Serious: Yes (Other)
  Sender: FDA-Public Use
  Company Number: 220002L09JPN

PATIENT
  Age: 41 Year
  Sex: Male

DRUGS (2)
  1. SOMATROPIN (SOMATROPIN) [Suspect]
     Indication: HYPOPITUITARISM
     Dates: start: 20050101
  2. HORMONE REPLACEMENT THERAPY (HORMONES AND RELATED AGENTS) [Concomitant]

REACTIONS (3)
  - DIPLEGIA [None]
  - GERM CELL CANCER [None]
  - MALIGNANT NEOPLASM OF SPINAL CORD [None]
